FAERS Safety Report 16924132 (Version 1)
Quarter: 2019Q4

REPORT INFORMATION
  Report Type: Spontaneous
  Country: US (occurrence: US)
  Receive Date: 20191015
  Receipt Date: 20191015
  Transmission Date: 20200122
  Serious: Yes (Disabling)
  Sender: FDA-Public Use
  Company Number: None

PATIENT
  Age: 56 Year
  Sex: Male
  Weight: 130.5 kg

DRUGS (1)
  1. CIPROFLOXACIN. [Suspect]
     Active Substance: CIPROFLOXACIN
     Indication: RESPIRATORY TRACT INFECTION
     Dosage: ?          QUANTITY:40 TABLET(S);?
     Route: 048
     Dates: start: 20130626, end: 20180626

REACTIONS (13)
  - Vomiting [None]
  - Otitis media [None]
  - Restless legs syndrome [None]
  - Sciatica [None]
  - Fatigue [None]
  - Neuralgia [None]
  - Gingival disorder [None]
  - Lethargy [None]
  - Tooth loss [None]
  - Depression [None]
  - Neuropathy peripheral [None]
  - Nausea [None]
  - Insomnia [None]

NARRATIVE: CASE EVENT DATE: 20130626
